FAERS Safety Report 5381265-9 (Version None)
Quarter: 2007Q3

REPORT INFORMATION
  Report Type: 
  Country: None (occurrence: None)
  Receive Date: 20070702
  Receipt Date: 20061114
  Transmission Date: 20080115
  Serious: Yes (Death)
  Sender: FDA-Public Use
  Company Number: T200601321

PATIENT
  Age: 19 Year
  Sex: Female
  Weight: 111.1 kg

DRUGS (4)
  1. HYDROCODONE BITARTRATE + ACETAMINOPHEN [Suspect]
     Dosage: ORAL
     Route: 048
  2. ZOLPIDEM TARTRATE [Suspect]
  3. VENLAFAXINE HCL [Suspect]
  4. CYCLOBENZAPRINE [Suspect]

REACTIONS (2)
  - CARDIAC ARREST [None]
  - OVERDOSE [None]
